FAERS Safety Report 12262120 (Version 1)
Quarter: 2016Q2

REPORT INFORMATION
  Report Type: Spontaneous
  Country: US (occurrence: US)
  Receive Date: 20160413
  Receipt Date: 20160413
  Transmission Date: 20160815
  Serious: No
  Sender: FDA-Public Use
  Company Number: US-GLAXOSMITHKLINE-US2016048660

PATIENT
  Age: 28 Year
  Sex: Female

DRUGS (3)
  1. ZYRTEC [Concomitant]
     Active Substance: CETIRIZINE HYDROCHLORIDE
     Indication: MULTIPLE ALLERGIES
     Dosage: UNK
  2. FLONASE [Suspect]
     Active Substance: FLUTICASONE PROPIONATE
     Indication: HYPERSENSITIVITY
     Dosage: UNK (DAY 1 WITH 1 SPRAY EACH NOSTRIL ONCE A DAY TO THEN 2 SPRAY EACH NOSTRIL ONCE A DAY 2 TO DAY 4)
     Dates: start: 20160404, end: 20160408
  3. FLONASE [Suspect]
     Active Substance: FLUTICASONE PROPIONATE
     Indication: SEASONAL ALLERGY

REACTIONS (6)
  - Gingival pain [Recovering/Resolving]
  - Headache [Recovered/Resolved]
  - Noninfective gingivitis [Recovered/Resolved]
  - Wrong technique in product usage process [Unknown]
  - Gingival bleeding [Recovering/Resolving]
  - Oral pain [Recovered/Resolved]

NARRATIVE: CASE EVENT DATE: 20160406
